FAERS Safety Report 4473941-7 (Version None)
Quarter: 2004Q4

REPORT INFORMATION
  Report Type: 
  Country: None (occurrence: None)
  Receive Date: 20041013
  Receipt Date: 20040928
  Transmission Date: 20050328
  Serious: Yes (Death)
  Sender: FDA-Public Use
  Company Number: 2004S1002656

PATIENT
  Age: 65 Year
  Sex: Female

DRUGS (9)
  1. CLOZAPINE [Suspect]
     Indication: DEMENTIA ALZHEIMER'S TYPE
     Dosage: 125 MG, TID, ORAL
     Route: 048
     Dates: start: 20040331, end: 20040808
  2. CLOZAPINE [Suspect]
     Indication: PARANOIA
     Dosage: 125 MG, TID, ORAL
     Route: 048
     Dates: start: 20040331, end: 20040808
  3. CLOZAPINE [Suspect]
     Indication: DEMENTIA ALZHEIMER'S TYPE
     Dosage: 125 MG, TID, ORAL
     Route: 048
     Dates: start: 20040331, end: 20040808
  4. CLOZAPINE [Suspect]
     Indication: PARANOIA
     Dosage: 125 MG, TID, ORAL
     Route: 048
     Dates: start: 20040331, end: 20040808
  5. VENLAFAXINE ER [Concomitant]
  6. GABAPENTIN [Concomitant]
  7. LANTUS [Concomitant]
  8. LORAZEPAM [Concomitant]
  9. GALANTAMINE [Concomitant]

REACTIONS (1)
  - DEATH [None]
